FAERS Safety Report 22320671 (Version 2)
Quarter: 2024Q3

REPORT INFORMATION
  Report Type: Report from Study
  Country: US (occurrence: US)
  Receive Date: 20230515
  Receipt Date: 20240906
  Transmission Date: 20241017
  Serious: Yes (Life-Threatening, Hospitalization, Disabling, Other)
  Sender: NOVARTIS
  Company Number: US-002147023-NVSC2023US110615

PATIENT
  Sex: Male
  Weight: 71.655 kg

DRUGS (1)
  1. ENTRESTO [Suspect]
     Active Substance: SACUBITRIL\VALSARTAN
     Indication: Cardiac failure congestive
     Dosage: 0.5 DOSAGE FORM, BID (HALF TABLET TWICE A DAY)
     Route: 048
     Dates: start: 2021

REACTIONS (8)
  - Pulmonary oedema [Recovering/Resolving]
  - Cough [Recovering/Resolving]
  - Rebound effect [Not Recovered/Not Resolved]
  - Cardiac failure congestive [Recovering/Resolving]
  - Wrong technique in product usage process [Not Recovered/Not Resolved]
  - Viral infection [Unknown]
  - Hypoaesthesia [Unknown]
  - Respiratory disorder [Unknown]

NARRATIVE: CASE EVENT DATE: 20210101
